FAERS Safety Report 20623777 (Version 2)
Quarter: 2022Q1

REPORT INFORMATION
  Report Type: Spontaneous
  Country: US (occurrence: US)
  Receive Date: 20220322
  Receipt Date: 20220331
  Transmission Date: 20220423
  Serious: Yes (Hospitalization)
  Sender: FDA-Public Use
  Company Number: US-009507513-2203USA005060

PATIENT
  Age: 69 Year
  Sex: Male
  Weight: 105.67 kg

DRUGS (28)
  1. PROVENTIL [Suspect]
     Active Substance: ALBUTEROL
     Indication: Lung disorder
     Dosage: 90 MICROGRAM, Q3D
     Route: 055
     Dates: start: 202101
  2. PROVENTIL [Suspect]
     Active Substance: ALBUTEROL
     Dosage: UNK
     Dates: start: 2018
  3. SYMBICORT [Suspect]
     Active Substance: BUDESONIDE\FORMOTEROL FUMARATE DIHYDRATE
     Indication: Lung disorder
     Dosage: 80/ 4.5 MCG, TWO TIMES DAILY
     Route: 055
     Dates: start: 202101
  4. ASPIRIN [Concomitant]
     Active Substance: ASPIRIN
     Dosage: 81 MILLIGRAM
  5. LIPITOR [Concomitant]
     Active Substance: ATORVASTATIN CALCIUM
     Dosage: 80 MILLIGRAM
  6. BASAGLAR [Concomitant]
     Active Substance: INSULIN GLARGINE
     Dosage: 35UNITS A DAY
  7. TESSALON [Concomitant]
     Active Substance: BENZONATATE
     Indication: Cough
     Dosage: 100 MILLIGRAM, Q6H
  8. BUSPAR [Concomitant]
     Active Substance: BUSPIRONE HYDROCHLORIDE
     Dosage: 10 MILLIGRAM, TID
  9. COREG [Concomitant]
     Active Substance: CARVEDILOL
     Dosage: 6.25 MILLIGRAM, BID
  10. CARDURA [Concomitant]
     Active Substance: DOXAZOSIN MESYLATE
     Dosage: 8MG ONE TAB AT NIGHT
  11. DULERA [Concomitant]
     Active Substance: FORMOTEROL FUMARATE DIHYDRATE\MOMETASONE FUROATE
     Dosage: 49 MILLIGRAM, BID
  12. ENTRESTO [Concomitant]
     Active Substance: SACUBITRIL\VALSARTAN
     Dosage: 51 MILLIGRAM, BID
  13. LEXAPRO [Concomitant]
     Active Substance: ESCITALOPRAM OXALATE
     Dosage: 20 MILLIGRAM, QD
  14. PEPCID [Concomitant]
     Active Substance: FAMOTIDINE
     Dosage: 20 MILLIGRAM, QD
  15. TRIGLIDE [Concomitant]
     Active Substance: FENOFIBRATE
     Dosage: UNK, QD
  16. MOMETASONE FUROATE [Concomitant]
     Active Substance: MOMETASONE FUROATE
     Dosage: SPRAY EACH NARES DAILY
  17. ADVAIR HFA [Concomitant]
     Active Substance: FLUTICASONE PROPIONATE\SALMETEROL XINAFOATE
     Dosage: 150-50
  18. LASIX [Concomitant]
     Active Substance: FUROSEMIDE
     Dosage: 40MG ONCE DAILY AS NEEDED
  19. GABAPENTIN [Concomitant]
     Active Substance: GABAPENTIN
     Dosage: ONE PILL IN AM AND TWO AT BEDTIME
  20. NORCO [Concomitant]
     Active Substance: ACETAMINOPHEN\HYDROCODONE BITARTRATE
     Dosage: 1 DOSAGE FORM, Q6H
  21. ZAROXOLYN [Concomitant]
     Active Substance: METOLAZONE
     Dosage: 2.5MG ONCE DAILY AS NEEDED
  22. ASMANEX [Concomitant]
     Active Substance: MOMETASONE FUROATE
     Dosage: INHALER
  23. SINGULAIR [Concomitant]
     Active Substance: MONTELUKAST SODIUM
     Dosage: 1 PILL BY MOUTH AT BEDTIME
  24. OMEPRAZOLE [Concomitant]
     Active Substance: OMEPRAZOLE
     Dosage: 40 MILLIGRAM, QD
  25. ALDACTONE [Concomitant]
     Active Substance: SPIRONOLACTONE
     Dosage: 25 MILLIGRAM, QD
  26. ZANAFLEX [Concomitant]
     Active Substance: TIZANIDINE HYDROCHLORIDE
     Dosage: 4 MILLIGRAM, TID
  27. TRAZODONE [Concomitant]
     Active Substance: TRAZODONE HYDROCHLORIDE
     Dosage: 100 MILLIGRAM, HS
  28. TRULICITY [Concomitant]
     Active Substance: DULAGLUTIDE
     Dosage: (1.5MG PER 0.5MI) 0.5ML ONCE WEEKLY
     Route: 058

REACTIONS (5)
  - COVID-19 [Not Recovered/Not Resolved]
  - COVID-19 [Unknown]
  - Asthenia [Unknown]
  - Product use in unapproved indication [Unknown]
  - Product dose omission issue [Unknown]

NARRATIVE: CASE EVENT DATE: 20200330
